FAERS Safety Report 5159920-5 (Version None)
Quarter: 2006Q4

REPORT INFORMATION
  Report Type: 
  Country: None (occurrence: None)
  Receive Date: 20061129
  Receipt Date: 20061123
  Transmission Date: 20070319
  Serious: Yes (Other)
  Sender: FDA-Public Use
  Company Number: AU-ROCHE-472467

PATIENT
  Sex: Male

DRUGS (1)
  1. CYMEVENE [Suspect]
     Dosage: FORM REPORTED AS VIAL.
     Route: 065

REACTIONS (2)
  - FAECAL INCONTINENCE [None]
  - RECTAL HAEMORRHAGE [None]
